FAERS Safety Report 4565614-7 (Version None)
Quarter: 2005Q1

REPORT INFORMATION
  Report Type: 
  Country: None (occurrence: None)
  Receive Date: 20050126
  Receipt Date: 20050106
  Transmission Date: 20050727
  Serious: Yes (Other)
  Sender: FDA-Public Use
  Company Number: USA050187801

PATIENT
  Age: 22 Year
  Sex: Female

DRUGS (3)
  1. CYMBALTA [Suspect]
     Indication: DEPRESSION
     Dosage: 210 MG DAY
     Dates: start: 20041225
  2. RETIN-A (TRETINOIN) [Concomitant]
  3. MINOCIN (MINOCYCLINE HYDROCHLORIDE) [Concomitant]

REACTIONS (4)
  - INTENTIONAL SELF-INJURY [None]
  - MEDICATION ERROR [None]
  - OVERDOSE [None]
  - TREATMENT NONCOMPLIANCE [None]
